FAERS Safety Report 21220316 (Version 2)
Quarter: 2022Q3

REPORT INFORMATION
  Report Type: Report from Study
  Country: US (occurrence: None)
  Receive Date: 20220817
  Receipt Date: 20220920
  Transmission Date: 20221027
  Serious: Yes (Hospitalization)
  Sender: FDA-Public Use
  Company Number: US-Merck Healthcare KGaA-9343022

PATIENT
  Sex: Female

DRUGS (3)
  1. REBIF [Suspect]
     Active Substance: INTERFERON BETA-1A
     Indication: Multiple sclerosis
     Route: 058
     Dates: start: 20110831
  2. TRAZODONE [Concomitant]
     Active Substance: TRAZODONE HYDROCHLORIDE
     Indication: Product used for unknown indication
     Dosage: 1 TABLET BY MOUTH EVERY BEDTIME FOR 30 DAYS
     Route: 048
  3. VITAMIN D3 [Concomitant]
     Active Substance: CHOLECALCIFEROL
     Indication: Product used for unknown indication
     Route: 048

REACTIONS (7)
  - Acute myocardial infarction [Recovering/Resolving]
  - Coronary artery occlusion [Unknown]
  - Coronary artery stenosis [Unknown]
  - Ischaemic cardiomyopathy [Unknown]
  - Type V hyperlipidaemia [Unknown]
  - Anxiety [Unknown]
  - Hypertension [Recovering/Resolving]
